FAERS Safety Report 23214472 (Version 2)
Quarter: 2023Q4

REPORT INFORMATION
  Report Type: Spontaneous
  Country: JP (occurrence: JP)
  Receive Date: 20231121
  Receipt Date: 20231204
  Transmission Date: 20240110
  Serious: Yes (Hospitalization)
  Sender: FDA-Public Use
  Company Number: JP-SA-SAC20231121000362

PATIENT
  Age: 20 Year
  Sex: Male

DRUGS (5)
  1. CLOBAZAM [Suspect]
     Active Substance: CLOBAZAM
     Indication: Epilepsy
     Dosage: 25-}30MG, QD
     Route: 048
  2. FYCOMPA [Suspect]
     Active Substance: PERAMPANEL
     Indication: Epilepsy
     Dosage: UNK
     Route: 048
  3. POTASSIUM BROMIDE [Concomitant]
     Active Substance: POTASSIUM BROMIDE
     Indication: Product used for unknown indication
     Dosage: UNK
     Route: 065
  4. VIMPAT [Concomitant]
     Active Substance: LACOSAMIDE
     Indication: Product used for unknown indication
     Dosage: UNK
     Route: 065
  5. LAMOTRIGINE [Concomitant]
     Active Substance: LAMOTRIGINE
     Indication: Product used for unknown indication
     Dosage: UNK
     Route: 065

REACTIONS (8)
  - Eating disorder [Recovered/Resolved]
  - Dizziness [Recovered/Resolved]
  - Fall [Unknown]
  - Gait disturbance [Recovered/Resolved]
  - Somnolence [Recovered/Resolved]
  - Pyrexia [Unknown]
  - Infection [Unknown]
  - Weight decreased [Unknown]
